FAERS Safety Report 18647479 (Version 1)
Quarter: 2020Q4

REPORT INFORMATION
  Report Type: Spontaneous
  Country: RU (occurrence: RU)
  Receive Date: 20201222
  Receipt Date: 20201222
  Transmission Date: 20210114
  Serious: Yes (Hospitalization, Other)
  Sender: FDA-Public Use
  Company Number: RU-MICRO LABS LIMITED-ML2020-03773

PATIENT
  Age: 48 Year
  Sex: Male

DRUGS (7)
  1. ATORVASTATIN [Suspect]
     Active Substance: ATORVASTATIN
  2. BISOPROLOL [Concomitant]
     Active Substance: BISOPROLOL
  3. AMBROXOL [Concomitant]
     Active Substance: AMBROXOL
  4. CANDESARTAN. [Concomitant]
     Active Substance: CANDESARTAN
  5. CLOPIDOGREL [Concomitant]
     Active Substance: CLOPIDOGREL BISULFATE
  6. PARACETAMOL [Suspect]
     Active Substance: ACETAMINOPHEN
  7. LINEZOLID. [Concomitant]
     Active Substance: LINEZOLID
     Dosage: FOR UP TO 10 DAYS

REACTIONS (3)
  - Drug-induced liver injury [Unknown]
  - Drug interaction [Unknown]
  - Rhabdomyolysis [Unknown]
